FAERS Safety Report 19893101 (Version 3)
Quarter: 2021Q4

REPORT INFORMATION
  Report Type: Spontaneous
  Country: US (occurrence: US)
  Receive Date: 20210929
  Receipt Date: 20211008
  Transmission Date: 20220303
  Serious: No
  Sender: FDA-Public Use
  Company Number: US-BRISTOL-MYERS SQUIBB COMPANY-BMS-2021-099021

PATIENT
  Age: 59 Year
  Sex: Female

DRUGS (2)
  1. SPRYCEL [Suspect]
     Active Substance: DASATINIB
     Indication: Chronic myeloid leukaemia
     Dosage: 100 MILLIGRAM, QD
     Route: 048
     Dates: start: 202109
  2. SPRYCEL [Suspect]
     Active Substance: DASATINIB
     Indication: Chronic myeloid leukaemia
     Dosage: 80 MILLIGRAM, QD
     Route: 048
     Dates: start: 202109

REACTIONS (3)
  - Nausea [Unknown]
  - Pain [Unknown]
  - Fatigue [Unknown]
